FAERS Safety Report 5232986-X (Version None)
Quarter: 2007Q1

REPORT INFORMATION
  Report Type: 
  Country: None (occurrence: None)
  Receive Date: 20070207
  Receipt Date: 20070125
  Transmission Date: 20070707
  Serious: Yes (Other)
  Sender: FDA-Public Use
  Company Number: US-SHR-US-2006-005078

PATIENT
  Age: 72 Year
  Sex: Female
  Weight: 62.993 kg

DRUGS (13)
  1. BETASERON [Suspect]
     Indication: PROGRESSIVE MULTIPLE SCLEROSIS
     Dosage: 8 MIU, EVERY 2D
     Route: 058
     Dates: start: 20041216, end: 20060101
  2. BETASERON [Suspect]
     Route: 058
     Dates: start: 20060201
  3. DITROPAN                                /USA/ [Concomitant]
     Dosage: 5 MG, AS REQ'D
     Route: 048
  4. FOSAMAX [Concomitant]
     Dosage: 70 MG, 1X/WEEK
     Route: 048
  5. ZETIA [Concomitant]
     Dosage: 10 MG, 1X/DAY
     Route: 048
  6. METAMUCIL [Concomitant]
     Dosage: 2 CAP(S), 1X/DAY
     Route: 048
  7. VITAMIN CAP [Concomitant]
     Dosage: 1 TAB(S), 1X/DAY
     Route: 048
  8. DOCUSATE SODIUM [Concomitant]
     Dosage: 100 MG, 1X/DAY
     Route: 048
  9. OS-CAL [Concomitant]
     Dosage: 500 MG, 2X/DAY
     Route: 048
  10. FERROUS SULFATE TAB [Concomitant]
     Dosage: 325 MG, 2X/DAY
     Route: 048
  11. VITAMIN B-12 [Concomitant]
     Dosage: 1 ML, 1X/MONTH
     Route: 030
  12. DARVOCET-N 100 [Concomitant]
     Dosage: 2 TAB(S), AS REQ'D
     Route: 048
  13. TUMS [Concomitant]
     Route: 048

REACTIONS (3)
  - ASTHENIA [None]
  - ATRIOVENTRICULAR BLOCK FIRST DEGREE [None]
  - BLOOD CREATINE PHOSPHOKINASE MB INCREASED [None]
